FAERS Safety Report 13687795 (Version 1)
Quarter: 2017Q2

REPORT INFORMATION
  Report Type: Spontaneous
  Country: US (occurrence: US)
  Receive Date: 20170623
  Receipt Date: 20170623
  Transmission Date: 20170830
  Serious: Yes (Life-Threatening)
  Sender: FDA-Public Use
  Company Number: None

PATIENT
  Age: 60 Year
  Sex: Female
  Weight: 95 kg

DRUGS (5)
  1. FEBURIC 40 [Suspect]
     Active Substance: FEBUXOSTAT
     Indication: GOUT
     Route: 048
     Dates: start: 20161008, end: 20170501
  2. TELMISARTAN. [Concomitant]
     Active Substance: TELMISARTAN
  3. ROSUVASTATIN. [Concomitant]
     Active Substance: ROSUVASTATIN
  4. NEBISTAR [Concomitant]
  5. CILNIDIPINE [Concomitant]
     Active Substance: CILNIDIPINE

REACTIONS (5)
  - Dyspnoea [None]
  - Oedema [None]
  - Hypertension [None]
  - Angina pectoris [None]
  - Ventricular tachycardia [None]

NARRATIVE: CASE EVENT DATE: 20170601
